FAERS Safety Report 7067812-X (Version None)
Quarter: 2010Q4

REPORT INFORMATION
  Report Type: 
  Country: None (occurrence: None)
  Receive Date: 20101028
  Receipt Date: 20101021
  Transmission Date: 20110411
  Serious: Yes (Death)
  Sender: FDA-Public Use
  Company Number: FR-CELGENEUS-056-21880-10102251

PATIENT
  Sex: Male
  Weight: 56 kg

DRUGS (7)
  1. REVLIMID [Suspect]
     Route: 048
     Dates: start: 20100825, end: 20100920
  2. REVLIMID [Suspect]
     Route: 048
     Dates: start: 20100922, end: 20100925
  3. DEXAMETHASONE [Suspect]
     Route: 065
     Dates: end: 20100901
  4. DEXAMETHASONE [Suspect]
     Indication: ASTHENIA
     Route: 065
  5. FORTUM [Concomitant]
     Indication: PRODUCT USED FOR UNKNOWN INDICATION
     Route: 065
  6. VANCOMYCIN HCL [Concomitant]
     Indication: PRODUCT USED FOR UNKNOWN INDICATION
     Route: 065
  7. RED BLOOD CELLS [Concomitant]
     Indication: PRODUCT USED FOR UNKNOWN INDICATION
     Dosage: 2 UNITS
     Route: 065

REACTIONS (1)
  - GENERAL PHYSICAL HEALTH DETERIORATION [None]
